FAERS Safety Report 4769059-6 (Version None)
Quarter: 2005Q3

REPORT INFORMATION
  Report Type: 
  Country: None (occurrence: None)
  Receive Date: 20050913
  Receipt Date: 20050901
  Transmission Date: 20060218
  Serious: Yes (Death)
  Sender: FDA-Public Use
  Company Number: 216913

PATIENT
  Sex: Female

DRUGS (1)
  1. SOMATROPIN(SOMATROPIN) UNKNOWN [Suspect]
     Indication: PRADER-WILLI SYNDROME

REACTIONS (7)
  - BODY MASS INDEX INCREASED [None]
  - GENERAL PHYSICAL HEALTH DETERIORATION [None]
  - HYPOVENTILATION [None]
  - MOBILITY DECREASED [None]
  - RESPIRATORY TRACT INFECTION [None]
  - SLEEP APNOEA SYNDROME [None]
  - TONSILLAR HYPERTROPHY [None]
